FAERS Safety Report 11610171 (Version 1)
Quarter: 2015Q4

REPORT INFORMATION
  Report Type: Report from Study
  Country: US (occurrence: US)
  Receive Date: 20151008
  Receipt Date: 20151008
  Transmission Date: 20160304
  Serious: Yes (Hospitalization, Other)
  Sender: FDA-Public Use
  Company Number: US-AMGEN-USASL2015103078

PATIENT
  Age: 83 Year
  Sex: Female

DRUGS (2)
  1. ENBREL [Suspect]
     Active Substance: ETANERCEPT
     Indication: RHEUMATOID ARTHRITIS
     Dosage: 50 MG, QWK ON THURSDAYS
     Route: 065
  2. METHOTREXATE [Concomitant]
     Active Substance: METHOTREXATE
     Dosage: UNK
     Dates: end: 20140611

REACTIONS (7)
  - Pyrexia [Unknown]
  - Anaemia [Unknown]
  - Feeling hot [Unknown]
  - Pneumonia [Unknown]
  - Candida infection [Unknown]
  - Haemorrhage [Unknown]
  - Rash pruritic [Unknown]

NARRATIVE: CASE EVENT DATE: 201404
